FAERS Safety Report 24834087 (Version 1)
Quarter: 2025Q1

REPORT INFORMATION
  Report Type: Spontaneous
  Country: FR (occurrence: FR)
  Receive Date: 20250113
  Receipt Date: 20250113
  Transmission Date: 20250408
  Serious: Yes (Life-Threatening)
  Sender: BANNER
  Company Number: None

PATIENT
  Age: 65 Year
  Sex: Female
  Weight: 67 kg

DRUGS (2)
  1. IBUPROFEN [Suspect]
     Active Substance: IBUPROFEN
     Indication: Abscess neck
     Dosage: 200MG 2 TIMES A DAY FOR 2 DAYS
     Route: 048
     Dates: start: 20241119, end: 20241122
  2. CLAMOXYL [Concomitant]
     Indication: Abscess neck
     Dosage: 1G 1 TIME PER DAY FOR 3 DAYS
     Route: 048
     Dates: start: 20241119, end: 20241122

REACTIONS (1)
  - Cellulitis [Recovering/Resolving]

NARRATIVE: CASE EVENT DATE: 20241122
